FAERS Safety Report 7156408-7 (Version None)
Quarter: 2010Q4

REPORT INFORMATION
  Report Type: 
  Country: None (occurrence: None)
  Receive Date: 20101214
  Receipt Date: 20101203
  Transmission Date: 20110411
  Serious: Yes (Other)
  Sender: FDA-Public Use
  Company Number: CA-ROCHE-746577

PATIENT
  Sex: Female
  Weight: 86 kg

DRUGS (9)
  1. BEVACIZUMAB [Suspect]
     Route: 042
     Dates: start: 20100708
  2. CYMBALTA [Concomitant]
  3. WELLBUTRIN [Concomitant]
  4. NEXIUM [Concomitant]
  5. MICARDIS [Concomitant]
  6. BENADRYL [Concomitant]
  7. ATIVAN [Concomitant]
  8. IMOVANE [Concomitant]
  9. METFORMIN [Concomitant]

REACTIONS (2)
  - GINGIVAL INFECTION [None]
  - THORACIC VERTEBRAL FRACTURE [None]
